FAERS Safety Report 10571954 (Version 2)
Quarter: 2014Q4

REPORT INFORMATION
  Report Type: Report from Study
  Country: US (occurrence: US)
  Receive Date: 20141107
  Receipt Date: 20141120
  Transmission Date: 20150529
  Serious: Yes (Hospitalization)
  Sender: FDA-Public Use
  Company Number: US-TARO-2014TAR00532

PATIENT
  Age: 54 Year
  Sex: Male
  Weight: 174.6 kg

DRUGS (24)
  1. THERA VITAMIN [Concomitant]
     Dosage: UNK, 1X/DAY
     Route: 048
  2. CENTRUM SILVER MULTIVITAMIN [Concomitant]
     Dosage: 1 UNK, UNK
     Route: 048
  3. ARIPIPRAZOLE. [Concomitant]
     Active Substance: ARIPIPRAZOLE
     Dosage: 10 MG, UNK
     Route: 048
  4. VORTIOXETINE [Concomitant]
     Active Substance: VORTIOXETINE
     Dosage: 10 MG, UNK
     Route: 048
  5. LUXIQ BETAMETHOSONE FOAM [Concomitant]
     Dosage: 200 MG, UNK
     Route: 061
  6. FOLIC ACID. [Concomitant]
     Active Substance: FOLIC ACID
     Dosage: 1 MG, UNK
     Route: 048
  7. MS CONTIN (MORPHINE) 30 MG EXTENDED RELEASE TABLET [Concomitant]
     Dosage: 30 MG, 1X/DAY
     Route: 048
     Dates: start: 20140418
  8. PRAVASTATIN [Concomitant]
     Active Substance: PRAVASTATIN\PRAVASTATIN SODIUM
     Dosage: 10 MG, UNK
     Route: 048
  9. CEPHALEXIN. [Concomitant]
     Active Substance: CEPHALEXIN
     Dosage: 500 MG, 3X/DAY
     Route: 048
     Dates: start: 20140912
  10. UNKNOWN (BLINDED) STUDY DRUG [Suspect]
     Active Substance: INVESTIGATIONAL PRODUCT
     Indication: PSORIASIS
     Dosage: UNK, 1X/DAY
     Route: 061
     Dates: start: 20141001, end: 20141028
  11. ATENOLOL-CHLORTHALIDONE [Concomitant]
     Dosage: UNK
     Route: 048
  12. HYDROXYZINE [Concomitant]
     Active Substance: HYDROXYZINE\HYDROXYZINE HYDROCHLORIDE
     Dosage: 25 MG, AS NEEDED
     Route: 048
  13. OXYCODONE [Concomitant]
     Active Substance: OXYCODONE
     Dosage: 120 MG, PRN
     Route: 048
     Dates: start: 20140418
  14. NON-FORMULARY CREAM (KETOPROFEN,BACLOFEN, GABAPENTIN, LIDOCAINE) [Concomitant]
     Dosage: UNK, AS NEEDED
     Route: 061
  15. DOCUSATE SODIUM. [Concomitant]
     Active Substance: DOCUSATE SODIUM
     Dosage: 100 MG, UNK
     Route: 048
  16. GLUCOSAMINE CHONRDROITIN [Concomitant]
     Dosage: 1 TABLETS, UNK
     Route: 048
  17. DIAZEPAM. [Concomitant]
     Active Substance: DIAZEPAM
     Dosage: 20 MG, UNK
     Route: 048
  18. MUPIROCIN 2% EXTERNAL OINTMENT [Concomitant]
     Dosage: UNK, AS NEEDED
     Dates: start: 20140418
  19. TACLONEX 0.005-0.064% EXTERNAL OINTMENT [Concomitant]
     Dosage: 60 G, UNK
     Dates: start: 20140912
  20. TESTOSTERONE CYPIONATE. [Concomitant]
     Active Substance: TESTOSTERONE CYPIONATE
     Dosage: 25 MG, Q28D
     Route: 030
  21. OSTEO BI-FLEX [Concomitant]
     Active Substance: CHONDROITIN SULFATE A\GLUCOSAMINE
     Dosage: UNK, 1X/DAY
     Route: 048
  22. FLUTICASONE-SALMETEROL [Concomitant]
     Dosage: UNK
  23. METHOTREXATE [Concomitant]
     Active Substance: METHOTREXATE
     Dosage: 5 MG, 1X/WEEK
     Route: 048
     Dates: start: 20140912
  24. TRIAMCINOLONE ACETONIDE 0.1% EXTERNAL CREAM [Concomitant]
     Dosage: UNK, 2X/DAY
     Dates: start: 20140912

REACTIONS (1)
  - Hidradenitis [Recovered/Resolved]

NARRATIVE: CASE EVENT DATE: 20141015
